FAERS Safety Report 23622224 (Version 1)
Quarter: 2024Q1

REPORT INFORMATION
  Report Type: Spontaneous
  Country: US (occurrence: US)
  Receive Date: 20240312
  Receipt Date: 20240312
  Transmission Date: 20240409
  Serious: No
  Sender: FDA-Public Use
  Company Number: US-PERRIGO-23US013815

PATIENT
  Age: 55 Year
  Sex: Female
  Weight: 92.063 kg

DRUGS (2)
  1. ACETAMINOPHEN AND IBUPROFEN [Suspect]
     Active Substance: ACETAMINOPHEN\IBUPROFEN
     Indication: Headache
     Dosage: 2 TABLETS, SINGLE
     Route: 048
     Dates: start: 20231118, end: 20231118
  2. ACETAMINOPHEN AND IBUPROFEN [Suspect]
     Active Substance: ACETAMINOPHEN\IBUPROFEN
     Indication: Pain
     Dosage: 2 TABLETS, SINGLE
     Route: 048
     Dates: start: 20231120, end: 20231120

REACTIONS (1)
  - Nausea [Unknown]

NARRATIVE: CASE EVENT DATE: 20231118
